FAERS Safety Report 23543195 (Version 1)
Quarter: 2024Q1

REPORT INFORMATION
  Report Type: Spontaneous
  Country: PT (occurrence: PT)
  Receive Date: 20240220
  Receipt Date: 20240220
  Transmission Date: 20240410
  Serious: Yes (Other)
  Sender: FDA-Public Use
  Company Number: None

PATIENT
  Age: 60 Year
  Sex: Male
  Weight: 64 kg

DRUGS (1)
  1. ACETAMINOPHEN [Suspect]
     Active Substance: ACETAMINOPHEN
     Indication: Pain prophylaxis
     Dosage: 1000MG/100ML ROUTE OF ADMIN (FREE TEXT): INTRAVENOSA
     Route: 042
     Dates: start: 20231127, end: 20231127

REACTIONS (1)
  - Larynx irritation [Recovered/Resolved]

NARRATIVE: CASE EVENT DATE: 20231127
